FAERS Safety Report 6934302-1 (Version None)
Quarter: 2010Q3

REPORT INFORMATION
  Report Type: 
  Country: None (occurrence: None)
  Receive Date: 20100820
  Receipt Date: 20100809
  Transmission Date: 20110219
  Serious: Yes (Hospitalization)
  Sender: FDA-Public Use
  Company Number: A0833422A

PATIENT
  Age: 48 Year
  Sex: Female
  Weight: 58.2 kg

DRUGS (2)
  1. AVANDIA [Suspect]
     Indication: DIABETES MELLITUS
     Dosage: 8MG PER DAY
     Route: 048
     Dates: start: 20020822, end: 20070722
  2. AVANDAMET [Suspect]
     Indication: DIABETES MELLITUS
     Dates: start: 20030116, end: 20030908

REACTIONS (4)
  - ANGINA UNSTABLE [None]
  - CARDIAC DISORDER [None]
  - CORONARY ARTERY DISEASE [None]
  - THROMBOSIS [None]
